FAERS Safety Report 18744082 (Version 1)
Quarter: 2021Q1

REPORT INFORMATION
  Report Type: Spontaneous
  Country: NO (occurrence: NO)
  Receive Date: 20210114
  Receipt Date: 20210114
  Transmission Date: 20210419
  Serious: Yes (Disabling)
  Sender: FDA-Public Use
  Company Number: NO-AMGEN-NORSP2021005881

PATIENT
  Age: 47 Year
  Sex: Female

DRUGS (6)
  1. CANDESARTAN KRKA [Concomitant]
     Active Substance: CANDESARTAN
     Indication: HYPERTENSION
     Dosage: 8 MG, QD
     Route: 065
     Dates: start: 2019
  2. ALTERMOL [Concomitant]
     Indication: MUSCULOSKELETAL PAIN
     Dosage: 500 MG (2 DAYS A WEEK)
     Route: 065
     Dates: start: 2018
  3. AIMOVIG [Suspect]
     Active Substance: ERENUMAB-AOOE
     Indication: MIGRAINE
     Dosage: 140 MG, Q4W (EVERY 4TH WEEK)
     Route: 058
     Dates: start: 201912
  4. STILNOCT [Concomitant]
     Active Substance: ZOLPIDEM TARTRATE
     Indication: INSOMNIA
     Dosage: 5 MG (3 TIMES A WEEK)
     Route: 065
     Dates: start: 2016
  5. MAXALT [Concomitant]
     Active Substance: RIZATRIPTAN BENZOATE
     Indication: MIGRAINE
     Dosage: 10 MG, 2?4 DAYS PER MONTH
     Route: 065
  6. CERAZETTE [DESOGESTREL] [Concomitant]
     Active Substance: DESOGESTREL
     Indication: MIGRAINE
     Dosage: 1 DF, QD
     Route: 065
     Dates: start: 2017

REACTIONS (5)
  - Back pain [Not Recovered/Not Resolved]
  - Pelvic pain [Not Recovered/Not Resolved]
  - Adnexa uteri pain [Not Recovered/Not Resolved]
  - Gait inability [Unknown]
  - Groin pain [Not Recovered/Not Resolved]

NARRATIVE: CASE EVENT DATE: 202001
